FAERS Safety Report 24056488 (Version 2)
Quarter: 2024Q3

REPORT INFORMATION
  Report Type: Spontaneous
  Country: US (occurrence: US)
  Receive Date: 20240705
  Receipt Date: 20240809
  Transmission Date: 20241017
  Serious: No
  Sender: MILLICENT HOLDINGS
  Company Number: US-Millicent Holdings Ltd.-MILL20241012

PATIENT
  Sex: Female

DRUGS (2)
  1. INTRAROSA [Suspect]
     Active Substance: PRASTERONE
     Indication: Product used for unknown indication
     Dosage: UNKNOWN
     Route: 067
     Dates: start: 20240710, end: 20240726
  2. INTRAROSA [Suspect]
     Active Substance: PRASTERONE
     Dosage: UNKNOWN
     Route: 067
     Dates: start: 202406

REACTIONS (14)
  - Contraindicated product administered [Unknown]
  - Vulvovaginal inflammation [Unknown]
  - Vulvovaginal erythema [Unknown]
  - Vulvovaginal pruritus [Unknown]
  - Vaginal disorder [Unknown]
  - Vaginal haemorrhage [Unknown]
  - Application site discharge [Unknown]
  - Dermatitis [Unknown]
  - Erythema [Unknown]
  - Pruritus [Unknown]
  - Skin disorder [Unknown]
  - Condition aggravated [Unknown]
  - Reaction to excipient [Unknown]
  - Drug ineffective [Unknown]

NARRATIVE: CASE EVENT DATE: 20240601
